FAERS Safety Report 24889481 (Version 2)
Quarter: 2025Q1

REPORT INFORMATION
  Report Type: Spontaneous
  Country: CA (occurrence: CA)
  Receive Date: 20250127
  Receipt Date: 20250130
  Transmission Date: 20250409
  Serious: Yes (Other)
  Sender: PFIZER
  Company Number: CA-PFIZER INC-202500014934

PATIENT
  Age: 64 Year
  Sex: Female

DRUGS (1)
  1. METHOTREXATE SODIUM [Suspect]
     Active Substance: METHOTREXATE SODIUM
     Indication: Rheumatoid arthritis
     Dosage: 15 MG, WEEKLY
     Route: 065

REACTIONS (3)
  - Foot operation [Unknown]
  - Condition aggravated [Not Recovered/Not Resolved]
  - Respiratory tract infection [Recovered/Resolved]

NARRATIVE: CASE EVENT DATE: 20241210
